FAERS Safety Report 7326816-X (Version None)
Quarter: 2011Q1

REPORT INFORMATION
  Report Type: 
  Country: None (occurrence: None)
  Receive Date: 20110222
  Receipt Date: 20110209
  Transmission Date: 20110831
  Serious: Yes (Hospitalization)
  Sender: FDA-Public Use
  Company Number: WAES 1101USA02729

PATIENT
  Age: 46 Year
  Sex: Male
  Weight: 73.4827 kg

DRUGS (6)
  1. RITONAVIR [Suspect]
     Indication: HIV INFECTION
     Dosage: 100 MG/DAILY/PO
     Route: 048
     Dates: start: 20101008
  2. NYSTATIN [Concomitant]
  3. ISENTRESS [Suspect]
     Indication: HIV INFECTION
     Dosage: 400 MG/BID/PO
     Route: 048
     Dates: start: 20101008
  4. ACETAMINOPHEN [Concomitant]
  5. SULFAMETHOXAZOLE (+) TRIMETHOPRIL [Concomitant]
  6. DARUNAVIR ETHANOLATE [Suspect]
     Indication: HIV INFECTION
     Dosage: 800 MG/DAILY/PO
     Route: 048
     Dates: start: 20101008

REACTIONS (6)
  - PYREXIA [None]
  - FEBRILE NEUTROPENIA [None]
  - RED BLOOD CELL COUNT DECREASED [None]
  - HAEMOGLOBIN DECREASED [None]
  - HAEMATOCRIT DECREASED [None]
  - WHITE BLOOD CELL COUNT DECREASED [None]
